FAERS Safety Report 8360224-8 (Version None)
Quarter: 2012Q2

REPORT INFORMATION
  Report Type: 
  Country: None (occurrence: None)
  Receive Date: 20120515
  Receipt Date: 20110621
  Transmission Date: 20120825
  Serious: No
  Sender: FDA-Public Use
  Company Number: US-ALEXION-A201100923

PATIENT
  Sex: Female
  Weight: 59.864 kg

DRUGS (9)
  1. COMBIVIR [Suspect]
     Dosage: UNK
  2. ALBUTEROL [Concomitant]
     Dosage: UNK
  3. COUMADIN [Concomitant]
     Dosage: UNK
  4. SOLIRIS [Suspect]
     Indication: PAROXYSMAL NOCTURNAL HAEMOGLOBINURIA
     Dosage: 600 MG, UNK
     Route: 042
     Dates: start: 20100907
  5. VIREAD [Suspect]
     Dosage: UNK
  6. SOLIRIS [Suspect]
     Dosage: 900 MG, Q2W
     Route: 042
     Dates: start: 20110816
  7. FOLIC ACID [Concomitant]
     Dosage: UNK
  8. VALTREX [Concomitant]
     Dosage: UNK
  9. FLOVENT [Concomitant]
     Dosage: UNK

REACTIONS (2)
  - NAUSEA [None]
  - VOMITING [None]
